FAERS Safety Report 7372700-5 (Version None)
Quarter: 2011Q1

REPORT INFORMATION
  Report Type: 
  Country: None (occurrence: None)
  Receive Date: 20110324
  Receipt Date: 20110310
  Transmission Date: 20110831
  Serious: Yes (Death, Hospitalization)
  Sender: FDA-Public Use
  Company Number: SI-JNJFOC-20110305483

PATIENT
  Sex: Male
  Weight: 80 kg

DRUGS (5)
  1. MESALAMINE [Concomitant]
     Indication: CROHN'S DISEASE
     Route: 048
  2. ALPHA D3 [Concomitant]
     Indication: CROHN'S DISEASE
     Dosage: 1 MICROGRAM
     Route: 048
  3. REMICADE [Suspect]
     Indication: CROHN'S DISEASE
     Dosage: TOTAL 3 DOSES
     Route: 042
  4. IMURAN [Concomitant]
     Indication: CROHN'S DISEASE
     Route: 048
  5. MEDROL [Concomitant]
     Indication: CROHN'S DISEASE
     Route: 048

REACTIONS (8)
  - BLOOD GLUCOSE DECREASED [None]
  - DISSEMINATED TUBERCULOSIS [None]
  - LEUKOPENIA [None]
  - THROMBOCYTOPENIA [None]
  - BAND NEUTROPHIL COUNT INCREASED [None]
  - ILEOSTOMY [None]
  - BRONCHOPULMONARY ASPERGILLOSIS [None]
  - HYPONATRAEMIA [None]
